FAERS Safety Report 4551065-8 (Version None)
Quarter: 2005Q1

REPORT INFORMATION
  Report Type: 
  Country: None (occurrence: None)
  Receive Date: 20050110
  Receipt Date: 20041227
  Transmission Date: 20050727
  Serious: Yes (Death, Other)
  Sender: FDA-Public Use
  Company Number: 15926

PATIENT
  Age: 63 Year
  Sex: Female
  Weight: 60.3284 kg

DRUGS (1)
  1. DAUNORUBICIN HCL [Suspect]
     Indication: ACUTE MYELOID LEUKAEMIA
     Dosage: 45MG/M2 OTHER
     Dates: start: 20041109

REACTIONS (3)
  - INFECTION [None]
  - NEUTROPENIA [None]
  - SINUS BRADYCARDIA [None]
